FAERS Safety Report 25603454 (Version 1)
Quarter: 2025Q3

REPORT INFORMATION
  Report Type: Spontaneous
  Country: US (occurrence: US)
  Receive Date: 20250724
  Receipt Date: 20250724
  Transmission Date: 20251021
  Serious: Yes (Other)
  Sender: APOTEX
  Company Number: US-APOTEX-2025AP010351

PATIENT
  Age: 23 Year
  Sex: Female
  Weight: 67.12 kg

DRUGS (2)
  1. RISPERIDONE [Suspect]
     Active Substance: RISPERIDONE
     Indication: Autism spectrum disorder
     Route: 065
     Dates: start: 20230224
  2. RISPERIDONE [Suspect]
     Active Substance: RISPERIDONE
     Dosage: 0.25 MILLIGRAM, QD
     Route: 065
     Dates: start: 2023

REACTIONS (2)
  - Tardive dyskinesia [Unknown]
  - Lactation disorder [Unknown]

NARRATIVE: CASE EVENT DATE: 20230101
